FAERS Safety Report 12476333 (Version 2)
Quarter: 2016Q2

REPORT INFORMATION
  Report Type: Spontaneous
  Country: US (occurrence: US)
  Receive Date: 20160617
  Receipt Date: 20160623
  Transmission Date: 20160815
  Serious: Yes (Other)
  Sender: FDA-Public Use
  Company Number: US-PFIZER INC-2016299771

PATIENT
  Age: 78 Year
  Sex: Female
  Weight: 64 kg

DRUGS (2)
  1. METHOTREXATE SODIUM. [Suspect]
     Active Substance: METHOTREXATE SODIUM
     Indication: RHEUMATOID ARTHRITIS
     Dosage: UNK
  2. REMICADE [Suspect]
     Active Substance: INFLIXIMAB
     Indication: RHEUMATOID ARTHRITIS
     Dosage: INFUSION ONCE A MONTH

REACTIONS (4)
  - Renal cancer [Unknown]
  - Arthropathy [Not Recovered/Not Resolved]
  - Bladder neoplasm [Unknown]
  - Liver function test increased [Unknown]

NARRATIVE: CASE EVENT DATE: 2014
